FAERS Safety Report 16514927 (Version 2)
Quarter: 2019Q3

REPORT INFORMATION
  Report Type: Spontaneous
  Country: BR (occurrence: BR)
  Receive Date: 20190702
  Receipt Date: 20190704
  Transmission Date: 20191004
  Serious: Yes (Other)
  Sender: FDA-Public Use
  Company Number: BR-ACTELION-A-CH2019-192355

PATIENT
  Sex: Female

DRUGS (1)
  1. BOSENTANA [Suspect]
     Active Substance: BOSENTAN
     Indication: PULMONARY HYPERTENSION
     Dosage: 125 MG, QD
     Route: 048

REACTIONS (8)
  - Therapy cessation [Unknown]
  - Counterfeit product administered [Unknown]
  - Dependence on oxygen therapy [Unknown]
  - Product counterfeit [Unknown]
  - Product dose omission [Unknown]
  - Product outer packaging issue [Unknown]
  - Vomiting [Unknown]
  - Malaise [Unknown]
